FAERS Safety Report 11876513 (Version 3)
Quarter: 2016Q1

REPORT INFORMATION
  Report Type: Spontaneous
  Country: US (occurrence: US)
  Receive Date: 20151229
  Receipt Date: 20160301
  Transmission Date: 20160526
  Serious: No
  Sender: FDA-Public Use
  Company Number: US-GLAXOSMITHKLINE-US2015180421

PATIENT
  Sex: Female
  Weight: 47.17 kg

DRUGS (5)
  1. REQUIP XL [Suspect]
     Active Substance: ROPINIROLE HYDROCHLORIDE
     Indication: PARKINSON^S DISEASE
     Dosage: 12 MG, QD
     Route: 048
     Dates: start: 2009
  2. REQUIP XL [Suspect]
     Active Substance: ROPINIROLE HYDROCHLORIDE
     Dosage: 24 MG, QD
  3. AZILECT [Concomitant]
     Active Substance: RASAGILINE MESYLATE
  4. LEVOTHYROXIN [Concomitant]
     Active Substance: LEVOTHYROXINE
  5. REQUIP XL [Suspect]
     Active Substance: ROPINIROLE HYDROCHLORIDE
     Dosage: 30 MG, QD

REACTIONS (2)
  - Drug ineffective [Unknown]
  - Disease progression [Unknown]
